FAERS Safety Report 13625027 (Version 3)
Quarter: 2017Q3

REPORT INFORMATION
  Report Type: Spontaneous
  Country: US (occurrence: US)
  Receive Date: 20170607
  Receipt Date: 20170920
  Transmission Date: 20171127
  Serious: Yes (Other)
  Sender: FDA-Public Use
  Company Number: US-JNJFOC-20170513599

PATIENT
  Sex: Male
  Weight: 101.61 kg

DRUGS (2)
  1. RISPERDAL [Suspect]
     Active Substance: RISPERIDONE
     Indication: POST-TRAUMATIC STRESS DISORDER
     Route: 048
     Dates: start: 2014, end: 201704
  2. RISPERDAL [Suspect]
     Active Substance: RISPERIDONE
     Indication: AFFECTIVE DISORDER
     Route: 048
     Dates: start: 2014, end: 201704

REACTIONS (7)
  - Erectile dysfunction [Not Recovered/Not Resolved]
  - Blood testosterone decreased [Recovered/Resolved]
  - Off label use [Unknown]
  - Chest discomfort [Not Recovered/Not Resolved]
  - Gynaecomastia [Not Recovered/Not Resolved]
  - Breast pain [Not Recovered/Not Resolved]
  - Product use in unapproved indication [Unknown]

NARRATIVE: CASE EVENT DATE: 2014
